FAERS Safety Report 4424065-6 (Version None)
Quarter: 2004Q3

REPORT INFORMATION
  Report Type: 
  Country: None (occurrence: None)
  Receive Date: 20040806
  Receipt Date: 20040806
  Transmission Date: 20050211
  Serious: Yes (Other)
  Sender: FDA-Public Use
  Company Number: None

PATIENT
  Sex: Female

DRUGS (1)
  1. KINERET [Suspect]
     Indication: RHEUMATOID ARTHRITIS
     Dosage: 100 MH SC DAILY
     Route: 058
     Dates: start: 20040722, end: 20040805

REACTIONS (4)
  - INJECTION SITE ERYTHEMA [None]
  - INJECTION SITE PAIN [None]
  - INJECTION SITE PRURITUS [None]
  - SKIN REACTION [None]
